FAERS Safety Report 19859868 (Version 1)
Quarter: 2021Q3

REPORT INFORMATION
  Report Type: Spontaneous
  Country: US (occurrence: US)
  Receive Date: 20210920
  Receipt Date: 20210920
  Transmission Date: 20211014
  Serious: No
  Sender: FDA-Public Use
  Company Number: None

PATIENT
  Age: 47 Year
  Sex: Female
  Weight: 85.05 kg

DRUGS (11)
  1. IMATINIB 400MG [Concomitant]
     Active Substance: IMATINIB
  2. OXYCODONE 10MG [Concomitant]
     Active Substance: OXYCODONE
  3. MELOXICAM 7.5MG [Concomitant]
     Active Substance: MELOXICAM
  4. PREGABALIN 75MG [Concomitant]
     Active Substance: PREGABALIN
  5. MORPHINE SULFATE ER 15MG [Concomitant]
     Active Substance: MORPHINE SULFATE
  6. EMERGEN?C IMMUNE [Concomitant]
  7. LOSARTAN?HCTZ 50?12.5MG [Concomitant]
     Active Substance: HYDROCHLOROTHIAZIDE\LOSARTAN POTASSIUM
  8. AMITRIPTYLINE 25MG [Concomitant]
     Active Substance: AMITRIPTYLINE
  9. AMLODIPINE [Concomitant]
     Active Substance: AMLODIPINE BESYLATE
  10. ZYKADIA [Suspect]
     Active Substance: CERITINIB
     Indication: NEUROFIBROSARCOMA
     Route: 048
     Dates: start: 20210819
  11. AIRBORNE [Concomitant]
     Active Substance: HERBALS\MINERALS\VITAMINS

REACTIONS (4)
  - Nausea [None]
  - Hypophagia [None]
  - Oesophageal discomfort [None]
  - Fatigue [None]

NARRATIVE: CASE EVENT DATE: 20210920
